FAERS Safety Report 4413269-4 (Version None)
Quarter: 2004Q3

REPORT INFORMATION
  Report Type: 
  Country: None (occurrence: None)
  Receive Date: 20040802
  Receipt Date: 20040723
  Transmission Date: 20050211
  Serious: Yes (Hospitalization)
  Sender: FDA-Public Use
  Company Number: 200417246GDDC

PATIENT
  Age: 68 Year
  Sex: Male
  Weight: 50.8 kg

DRUGS (4)
  1. TAXOTERE [Suspect]
     Indication: LUNG ADENOCARCINOMA
     Route: 042
     Dates: start: 20040710, end: 20040710
  2. CARBOPLATIN [Suspect]
     Indication: LUNG ADENOCARCINOMA
     Route: 042
     Dates: start: 20040710, end: 20040710
  3. DEXAMETHASONE [Concomitant]
     Route: 048
     Dates: start: 20040709, end: 20040711
  4. DOLASETRON MESYLATE [Concomitant]
     Route: 042
     Dates: start: 20040710, end: 20040713

REACTIONS (12)
  - ANURIA [None]
  - BLOOD CALCIUM DECREASED [None]
  - BLOOD CHLORIDE DECREASED [None]
  - BLOOD SODIUM DECREASED [None]
  - DIARRHOEA [None]
  - FEBRILE NEUTROPENIA [None]
  - HAEMOGLOBIN DECREASED [None]
  - HYPERKALAEMIA [None]
  - PCO2 DECREASED [None]
  - PLATELET COUNT DECREASED [None]
  - RESPIRATORY RATE INCREASED [None]
  - WHITE BLOOD CELL COUNT DECREASED [None]
